FAERS Safety Report 5566656-5 (Version None)
Quarter: 2007Q4

REPORT INFORMATION
  Report Type: 
  Country: None (occurrence: None)
  Receive Date: 20071219
  Receipt Date: 20071215
  Transmission Date: 20080405
  Serious: Yes (Life-Threatening, Hospitalization)
  Sender: FDA-Public Use
  Company Number: PHEH2007US15779

PATIENT
  Age: 80 Year
  Sex: Female

DRUGS (10)
  1. COUMADIN [Concomitant]
  2. FUROSEMIDE [Concomitant]
  3. NEURONTIN [Concomitant]
  4. VITAMIN C AND E [Concomitant]
  5. NITRGLYCERIN TRANSDERMAL SYSTEM [Concomitant]
  6. DECITABINE [Concomitant]
  7. ARIMIDEX [Concomitant]
  8. POTASSIUM CHLORIDE [Concomitant]
  9. EXJADE [Suspect]
     Indication: IRON OVERLOAD
     Dosage: 500 MG, QD
     Route: 048
     Dates: start: 20070701, end: 20070816
  10. LEVOXYL [Concomitant]

REACTIONS (5)
  - ASTHENIA [None]
  - LIVER DISORDER [None]
  - NAUSEA [None]
  - RENAL IMPAIRMENT [None]
  - VISUAL DISTURBANCE [None]
